FAERS Safety Report 23143892 (Version 3)
Quarter: 2023Q4

REPORT INFORMATION
  Report Type: Spontaneous
  Country: CN (occurrence: CN)
  Receive Date: 20231103
  Receipt Date: 20231205
  Transmission Date: 20240110
  Serious: No
  Sender: FDA-Public Use
  Company Number: CN-PFIZER INC-PV202300168722

PATIENT
  Sex: Male

DRUGS (1)
  1. BENEFIX [Suspect]
     Active Substance: COAGULATION FACTOR IX RECOMBINANT HUMAN\ISOPROPYL ALCOHOL
     Dosage: 1000 IU/VIAL
     Route: 042
     Dates: start: 20190201

REACTIONS (1)
  - Device physical property issue [Unknown]
